FAERS Safety Report 8818502 (Version 7)
Quarter: 2015Q1

REPORT INFORMATION
  Report Type: Report from Study
  Country: CA (occurrence: CA)
  Receive Date: 20121001
  Receipt Date: 20150114
  Transmission Date: 20150721
  Serious: Yes (Other)
  Sender: FDA-Public Use
  Company Number: CA-ROCHE-1137512

PATIENT
  Age: 53 Year
  Sex: Female
  Weight: 99.88 kg

DRUGS (15)
  1. RITUXAN [Suspect]
     Active Substance: RITUXIMAB
     Indication: RHEUMATOID ARTHRITIS
     Dosage: DAY 1, 15
     Route: 042
     Dates: start: 20120216
  2. RITUXAN [Suspect]
     Active Substance: RITUXIMAB
     Dosage: DAY 1, 15
     Route: 042
     Dates: start: 20141230
  3. LIPIDIL [Concomitant]
     Active Substance: FENOFIBRATE
  4. TEVA-HYDROCHLOROTHIAZIDE [Concomitant]
  5. ELAVIL [Concomitant]
     Active Substance: AMITRIPTYLINE HYDROCHLORIDE
  6. PANTOLOC [Concomitant]
     Active Substance: PANTOPRAZOLE SODIUM
     Route: 065
  7. CELEBREX [Concomitant]
     Active Substance: CELECOXIB
  8. BENADRYL [Concomitant]
     Active Substance: DIPHENHYDRAMINE HYDROCHLORIDE
     Route: 048
     Dates: start: 20120216
  9. HYDROXYCHLOROQUINE [Concomitant]
     Active Substance: HYDROXYCHLOROQUINE
  10. PREDNISONE. [Concomitant]
     Active Substance: PREDNISONE
     Route: 065
  11. TYLENOL [Concomitant]
     Active Substance: ACETAMINOPHEN
     Route: 048
     Dates: start: 20120216
  12. SOLU-MEDROL [Concomitant]
     Active Substance: METHYLPREDNISOLONE SODIUM SUCCINATE
     Route: 042
     Dates: start: 20120216
  13. METHOTREXATE [Concomitant]
     Active Substance: METHOTREXATE
     Route: 058
  14. ATIVAN [Concomitant]
     Active Substance: LORAZEPAM
  15. ACID FOLIC [Concomitant]
     Route: 065

REACTIONS (5)
  - Sinusitis [Recovering/Resolving]
  - Infusion related reaction [Unknown]
  - Pruritus [Recovering/Resolving]
  - Acne [Recovering/Resolving]
  - Blood pressure increased [Unknown]

NARRATIVE: CASE EVENT DATE: 201204
